FAERS Safety Report 19448583 (Version 1)
Quarter: 2021Q2

REPORT INFORMATION
  Report Type: Spontaneous
  Country: US (occurrence: US)
  Receive Date: 20210622
  Receipt Date: 20210622
  Transmission Date: 20210717
  Serious: No
  Sender: FDA-Public Use
  Company Number: US-PFIZER INC-2021587207

PATIENT
  Age: 62 Year
  Sex: Female

DRUGS (4)
  1. HYDROCHLOROTHIAZIDE. [Suspect]
     Active Substance: HYDROCHLOROTHIAZIDE
     Indication: SINUS TACHYCARDIA
     Dosage: 25 MG
     Dates: start: 20210408
  2. LISINOPRIL. [Suspect]
     Active Substance: LISINOPRIL
     Indication: SINUS TACHYCARDIA
     Dosage: 40 MG
     Dates: start: 20210408
  3. NORVASC [Suspect]
     Active Substance: AMLODIPINE BESYLATE
     Indication: SINUS TACHYCARDIA
     Dosage: 5 MG, DAILY
     Dates: start: 20210408
  4. METOPROLOL SUCCINATE. [Suspect]
     Active Substance: METOPROLOL SUCCINATE
     Indication: SINUS TACHYCARDIA
     Dosage: 25 MG, DAILY
     Dates: start: 20210408

REACTIONS (2)
  - Drug ineffective for unapproved indication [Unknown]
  - Off label use [Unknown]

NARRATIVE: CASE EVENT DATE: 20210408
